FAERS Safety Report 18093440 (Version 2)
Quarter: 2020Q3

REPORT INFORMATION
  Report Type: Spontaneous
  Country: US (occurrence: US)
  Receive Date: 20200730
  Receipt Date: 20200911
  Transmission Date: 20201103
  Serious: No
  Sender: FDA-Public Use
  Company Number: US-GLAXOSMITHKLINE-US2020140227

PATIENT
  Sex: Female
  Weight: 49.4 kg

DRUGS (1)
  1. BREO ELLIPTA [Suspect]
     Active Substance: FLUTICASONE FUROATE\VILANTEROL TRIFENATATE
     Indication: PRODUCT USED FOR UNKNOWN INDICATION
     Dosage: UNK (AS NEEDED )

REACTIONS (4)
  - Intentional product misuse [Unknown]
  - Appetite disorder [Unknown]
  - Intentional underdose [Unknown]
  - Cough [Unknown]
